FAERS Safety Report 13724328 (Version 1)
Quarter: 2017Q3

REPORT INFORMATION
  Report Type: Spontaneous
  Country: US (occurrence: US)
  Receive Date: 20170706
  Receipt Date: 20170706
  Transmission Date: 20171127
  Serious: Yes (Other)
  Sender: FDA-Public Use
  Company Number: US-JNJFOC-20170425831

PATIENT
  Age: 34 Year
  Sex: Female

DRUGS (1)
  1. REMICADE [Suspect]
     Active Substance: INFLIXIMAB
     Indication: CROHN^S DISEASE
     Route: 042

REACTIONS (6)
  - Drug specific antibody [Unknown]
  - Crohn^s disease [Unknown]
  - Fatigue [Unknown]
  - Drug level below therapeutic [Unknown]
  - Epstein-Barr virus antibody positive [Unknown]
  - Arthropathy [Unknown]
